FAERS Safety Report 13923585 (Version 1)
Quarter: 2017Q3

REPORT INFORMATION
  Report Type: Spontaneous
  Country: US (occurrence: US)
  Receive Date: 20170830
  Receipt Date: 20170830
  Transmission Date: 20171127
  Serious: Yes (Disabling, Congenital Anomaly, Other)
  Sender: FDA-Public Use
  Company Number: None

PATIENT
  Age: 21 Year
  Sex: Male
  Weight: 92.25 kg

DRUGS (3)
  1. CLONAZEPAM 0.5 MG TABLET [Suspect]
     Active Substance: CLONAZEPAM
     Indication: NEURALGIA
     Dosage: ?          QUANTITY:60 TABLET(S);?
     Route: 048
  2. CLONAZEPAM 0.5 MG TABLET [Suspect]
     Active Substance: CLONAZEPAM
     Indication: RESTLESS LEGS SYNDROME
     Dosage: ?          QUANTITY:60 TABLET(S);?
     Route: 048
  3. SEROQUEL [Concomitant]
     Active Substance: QUETIAPINE FUMARATE

REACTIONS (5)
  - Drug effect decreased [None]
  - Neuralgia [None]
  - Product physical issue [None]
  - Condition aggravated [None]
  - Product quality issue [None]

NARRATIVE: CASE EVENT DATE: 20170817
